FAERS Safety Report 22843803 (Version 6)
Quarter: 2023Q4

REPORT INFORMATION
  Report Type: Report from Study
  Country: US (occurrence: US)
  Receive Date: 20230821
  Receipt Date: 20231124
  Transmission Date: 20240109
  Serious: Yes (Other)
  Sender: FDA-Public Use
  Company Number: US-EXELIXIS-CABO-23067080

PATIENT
  Age: 69 Year
  Sex: Male

DRUGS (28)
  1. CABOMETYX [Suspect]
     Active Substance: CABOZANTINIB S-MALATE
     Indication: Renal cancer
     Dosage: 40 MG
     Dates: start: 20230718
  2. CABOMETYX [Suspect]
     Active Substance: CABOZANTINIB S-MALATE
     Indication: Metastases to bone
     Dosage: 40 MG, QD
     Route: 048
     Dates: end: 20230823
  3. CABOMETYX [Suspect]
     Active Substance: CABOZANTINIB S-MALATE
     Dosage: 20 MG, QD (SPLITTING 40 MG DOSE IN HALF)
     Route: 048
  4. CABOMETYX [Suspect]
     Active Substance: CABOZANTINIB S-MALATE
     Dosage: 20 MG, QD
     Route: 048
  5. KEYTRUDA [Suspect]
     Active Substance: PEMBROLIZUMAB
     Indication: Renal cancer
  6. KEYTRUDA [Suspect]
     Active Substance: PEMBROLIZUMAB
     Indication: Metastases to bone
  7. ASPIRIN [Concomitant]
     Active Substance: ASPIRIN
  8. COLCHICINE [Concomitant]
     Active Substance: COLCHICINE
  9. FERROUS SULFATE [Concomitant]
     Active Substance: FERROUS SULFATE
  10. FLOMAX [Concomitant]
     Active Substance: TAMSULOSIN HYDROCHLORIDE
  11. FOLIC ACID [Concomitant]
     Active Substance: FOLIC ACID
  12. FUROSEMIDE [Concomitant]
     Active Substance: FUROSEMIDE
  13. MAGNESIUM [Concomitant]
     Active Substance: MAGNESIUM
  14. METOPROLOL [Concomitant]
     Active Substance: METOPROLOL
  15. PROTONIX [Concomitant]
     Active Substance: PANTOPRAZOLE SODIUM
  16. ROPINIROLE HYDROCHLORIDE [Concomitant]
     Active Substance: ROPINIROLE HYDROCHLORIDE
  17. TIZANIDINE HYDROCHLORIDE [Concomitant]
     Active Substance: TIZANIDINE HYDROCHLORIDE
  18. TRELEGY ELLIPTA [Concomitant]
     Active Substance: FLUTICASONE FUROATE\UMECLIDINIUM BROMIDE\VILANTEROL TRIFENATATE
  19. TRIAMCINOLONE [Concomitant]
     Active Substance: TRIAMCINOLONE
  20. AMOXICILLIN [Concomitant]
     Active Substance: AMOXICILLIN
  21. BIOFREEZE [Concomitant]
     Active Substance: MENTHOL
  22. GABAPENTIN [Concomitant]
     Active Substance: GABAPENTIN
  23. IPRATROPIUM [Concomitant]
     Active Substance: IPRATROPIUM
  24. LIDOCAINE [Concomitant]
     Active Substance: LIDOCAINE
  25. POTASSIUM [Concomitant]
     Active Substance: POTASSIUM
  26. SILDENAFIL [Concomitant]
     Active Substance: SILDENAFIL
  27. TYLENOL [Concomitant]
     Active Substance: ACETAMINOPHEN
  28. VOLTAREN [Concomitant]
     Active Substance: DICLOFENAC SODIUM

REACTIONS (24)
  - Circulatory collapse [Unknown]
  - Myocarditis [Unknown]
  - Metastases to lymph nodes [Unknown]
  - Malignant neoplasm progression [Unknown]
  - Metastases to lung [Unknown]
  - Blister [Not Recovered/Not Resolved]
  - Hyperkeratosis [Unknown]
  - Acne [Unknown]
  - Skin erosion [Unknown]
  - Nasal ulcer [Unknown]
  - Haemoptysis [Unknown]
  - Diarrhoea [Unknown]
  - Headache [Not Recovered/Not Resolved]
  - Muscle spasms [Unknown]
  - Decubitus ulcer [Not Recovered/Not Resolved]
  - Gingival swelling [Unknown]
  - Gingival bleeding [Unknown]
  - Tooth abscess [Recovered/Resolved]
  - Lung disorder [Unknown]
  - Gout [Unknown]
  - Immune system disorder [Unknown]
  - Musculoskeletal chest pain [Unknown]
  - Dysphonia [Unknown]
  - Wrong technique in product usage process [Unknown]

NARRATIVE: CASE EVENT DATE: 20230813
